FAERS Safety Report 5362646-6 (Version None)
Quarter: 2007Q2

REPORT INFORMATION
  Report Type: 
  Country: None (occurrence: None)
  Receive Date: 20070614
  Receipt Date: 20070601
  Transmission Date: 20071010
  Serious: Yes (Disabling)
  Sender: FDA-Public Use
  Company Number: 2005-130477-NL

PATIENT
  Age: 5 Year
  Sex: Female

DRUGS (18)
  1. PANCURONIUM [Suspect]
     Indication: MECHANICAL VENTILATION
     Dosage: INTRAVENOUS DRIP
     Route: 041
     Dates: start: 19971006, end: 19971008
  2. PANCURONIUM [Suspect]
     Indication: MECHANICAL VENTILATION
     Dosage: INTRAVENOUS DRIP
     Route: 041
     Dates: start: 19971009, end: 19971013
  3. DOPAMINE HCL [Concomitant]
  4. DOBUTAMINE HYDROCHLORIDE [Concomitant]
  5. FENTANYL CITRATE [Concomitant]
  6. CALCIUM GLUCONATE [Concomitant]
  7. ALPROSTADIL [Concomitant]
  8. CEFMETAZOLE SODIUM [Concomitant]
  9. CARBAZOCHROME SODIUM SULFONATE [Concomitant]
  10. TRANEXAMIC ACID [Concomitant]
  11. ULINASTATIN [Concomitant]
  12. DEXAMETHASONE 0.5MG TAB [Concomitant]
  13. GLYCERYL TRINITRATE [Concomitant]
  14. FUROSEMIDE [Concomitant]
  15. SODIUM BICARBONATE [Concomitant]
  16. NETILMICIN SULFATE [Concomitant]
  17. CEFOTIAM HYDROCHLORIDE [Concomitant]
  18. NITRIC OXIDE [Concomitant]

REACTIONS (1)
  - DEAFNESS NEUROSENSORY [None]
